FAERS Safety Report 21967380 (Version 2)
Quarter: 2024Q1

REPORT INFORMATION
  Report Type: Report from Study
  Country: IT (occurrence: IT)
  Receive Date: 20230208
  Receipt Date: 20240320
  Transmission Date: 20240410
  Serious: Yes (Other)
  Sender: FDA-Public Use
  Company Number: IT-ROCHE-3246369

PATIENT
  Age: 62 Year
  Sex: Female

DRUGS (25)
  1. AROMASIN [Suspect]
     Active Substance: EXEMESTANE
     Indication: HER2 positive breast cancer
     Route: 048
     Dates: start: 20181211, end: 20201207
  2. TAXOTERE [Suspect]
     Active Substance: DOCETAXEL
     Indication: HER2 positive breast cancer
     Route: 042
     Dates: start: 20171211, end: 20180327
  3. PERJETA [Suspect]
     Active Substance: PERTUZUMAB
     Indication: HER2 positive breast cancer
     Dosage: 420 MG, EVERY 3 WEEKS
     Route: 042
     Dates: start: 20180102, end: 20201116
  4. HERCEPTIN [Suspect]
     Active Substance: TRASTUZUMAB
     Indication: HER2 positive breast cancer
     Dosage: 6 MG/KG, EVERY 3 WEEKS
     Route: 042
     Dates: start: 20180102, end: 20201116
  5. FEMARA [Suspect]
     Active Substance: LETROZOLE
     Indication: HER2 positive breast cancer
     Dosage: 2.5 MG, 1X/DAY
     Route: 048
     Dates: start: 20180416, end: 20181210
  6. KADCYLA [Suspect]
     Active Substance: ADO-TRASTUZUMAB EMTANSINE
     Indication: HER2 positive breast cancer
     Route: 042
     Dates: start: 20201207, end: 20220214
  7. KADCYLA [Suspect]
     Active Substance: ADO-TRASTUZUMAB EMTANSINE
     Route: 042
     Dates: start: 20220214, end: 20230515
  8. ATORVASTATIN [Concomitant]
     Active Substance: ATORVASTATIN
     Dosage: UNK
  9. ATORVASTATIN [Concomitant]
     Active Substance: ATORVASTATIN
     Dosage: ONGOING = CHECKED
  10. FUROSEMIDE [Concomitant]
     Active Substance: FUROSEMIDE
     Dosage: UNK
     Dates: start: 20200608
  11. KEFIBIOS [Concomitant]
     Dosage: ONGOING = CHECKED
     Dates: start: 20171231
  12. DEXAMETHASONE [Concomitant]
     Active Substance: DEXAMETHASONE
     Dosage: ONGOING = CHECKED
     Dates: start: 20180122
  13. LANSOPRAZOLE [Concomitant]
     Active Substance: LANSOPRAZOLE
     Dosage: UNK
     Dates: start: 20191105
  14. RAMIPRIL [Concomitant]
     Active Substance: RAMIPRIL
     Dosage: UNK
     Dates: start: 20190304
  15. DEXAMETHASONE [Concomitant]
     Active Substance: DEXAMETHASONE
  16. RANITIDINE [Concomitant]
     Active Substance: RANITIDINE
  17. PREGABALIN [Concomitant]
     Active Substance: PREGABALIN
  18. MAGNESIUM [Concomitant]
     Active Substance: MAGNESIUM
  19. MYCOSTATIN [Concomitant]
     Active Substance: NYSTATIN
  20. FILGRASTIM [Concomitant]
     Active Substance: FILGRASTIM
  21. PREDNISONE [Concomitant]
     Active Substance: PREDNISONE
  22. CHLORPHENIRAMINE MALEATE [Concomitant]
     Active Substance: CHLORPHENIRAMINE MALEATE
  23. PALEXIA [Concomitant]
     Active Substance: TAPENTADOL HYDROCHLORIDE
  24. LEVOSULPIRIDE [Concomitant]
     Active Substance: LEVOSULPIRIDE
  25. LASIX [Concomitant]
     Active Substance: FUROSEMIDE

REACTIONS (1)
  - Neuropathy peripheral [Not Recovered/Not Resolved]

NARRATIVE: CASE EVENT DATE: 20220214
